FAERS Safety Report 8368502-3 (Version None)
Quarter: 2012Q2

REPORT INFORMATION
  Report Type: 
  Country: None (occurrence: None)
  Receive Date: 20120518
  Receipt Date: 20120509
  Transmission Date: 20120825
  Serious: Yes (Hospitalization, Other)
  Sender: FDA-Public Use
  Company Number: US-BIOGENIDEC-2012BI002227

PATIENT
  Age: 35 Year
  Sex: Female
  Weight: 60 kg

DRUGS (11)
  1. CYTOXAN [Concomitant]
     Route: 042
     Dates: start: 20071109
  2. TYSABRI [Suspect]
     Indication: MULTIPLE SCLEROSIS
     Route: 042
     Dates: start: 20080319
  3. TRAZODONE HCL [Concomitant]
     Indication: DEPRESSION
     Route: 048
     Dates: start: 20090831
  4. METHYLPREDNISOLONE [Concomitant]
     Route: 042
     Dates: start: 20070801
  5. CLONAZEPAM [Concomitant]
     Indication: TREMOR
     Route: 048
     Dates: start: 20100902
  6. FLUOXETINE [Concomitant]
     Indication: DEPRESSION
     Route: 048
     Dates: start: 20101213
  7. GABAPENTIN [Concomitant]
     Indication: MULTIPLE SCLEROSIS
     Route: 048
     Dates: start: 20081216
  8. LOVASTATIN [Concomitant]
     Indication: BLOOD CHOLESTEROL
     Route: 048
     Dates: start: 20071012
  9. TRETINOIN [Concomitant]
     Indication: ACNE
     Route: 061
     Dates: start: 20110314
  10. CLONAZEPAM [Concomitant]
     Indication: ANXIETY
     Route: 048
     Dates: start: 20100902
  11. DUAC CS [Concomitant]
     Indication: ACNE
     Route: 061
     Dates: start: 20110314

REACTIONS (1)
  - THYROID CANCER [None]
